FAERS Safety Report 17819237 (Version 1)
Quarter: 2020Q2

REPORT INFORMATION
  Report Type: Spontaneous
  Country: FR (occurrence: FR)
  Receive Date: 20200523
  Receipt Date: 20200523
  Transmission Date: 20200714
  Serious: Yes (Hospitalization)
  Sender: FDA-Public Use
  Company Number: FR-ACCORD-182828

PATIENT
  Age: 77 Year
  Sex: Female
  Weight: 79 kg

DRUGS (16)
  1. LOPRAZOLAM/LOPRAZOLAM MESILATE [Concomitant]
     Active Substance: LOPRAZOLAM MESILATE
  2. PARACETAMOL [Suspect]
     Active Substance: ACETAMINOPHEN
     Indication: PAIN
     Dosage: NOT COMMUNICATED
     Route: 048
     Dates: end: 201702
  3. PREGABALIN. [Suspect]
     Active Substance: PREGABALIN
     Indication: PRODUCT USED FOR UNKNOWN INDICATION
     Dosage: NOT COMMUNICATED
     Route: 048
     Dates: end: 201702
  4. LUMIRELAX [Concomitant]
  5. NAPROXEN. [Suspect]
     Active Substance: NAPROXEN
     Indication: BACK PAIN
     Dosage: NOT COMMUNICATED
     Route: 048
     Dates: end: 201702
  6. INSULINE GLARGINE ((BACTERIE/ESCHERICHIA COLI)) [Concomitant]
     Active Substance: INSULIN GLARGINE
  7. FUROSEMIDE. [Suspect]
     Active Substance: FUROSEMIDE
     Indication: HYPERTENSION
     Dosage: NOT COMMUNICATED
     Route: 048
     Dates: end: 201702
  8. METFORMIN [Suspect]
     Active Substance: METFORMIN HYDROCHLORIDE
     Indication: DIABETES MELLITUS
     Dosage: NOT COMMUNICATED
     Route: 048
     Dates: end: 201702
  9. DESLORATADINE. [Concomitant]
     Active Substance: DESLORATADINE
  10. AMLODIPINE [Suspect]
     Active Substance: AMLODIPINE BESYLATE
     Indication: HYPERTENSION
     Dosage: NOT COMMUNICATED
     Route: 048
     Dates: end: 201702
  11. ESCITALOPRAM [Suspect]
     Active Substance: ESCITALOPRAM OXALATE
     Indication: DEPRESSION
     Dosage: NOT COMMUNICATED
     Route: 048
  12. ESOMEPRAZOLE/ESOMEPRAZOLE MAGNESIUM/ESOMEPRAZOLE SODIUM [Suspect]
     Active Substance: ESOMEPRAZOLE
     Indication: GASTROOESOPHAGEAL REFLUX DISEASE
     Dosage: NOT COMMUNICATED
     Route: 048
     Dates: end: 201702
  13. SIMVASTATIN. [Suspect]
     Active Substance: SIMVASTATIN
     Indication: HYPERCHOLESTEROLAEMIA
     Dosage: NOT COMMUNICATED
     Route: 048
     Dates: end: 201702
  14. PROPRANOLOL [Suspect]
     Active Substance: PROPRANOLOL HYDROCHLORIDE
     Indication: ESSENTIAL TREMOR
     Dosage: NOT COMMUNICATED
     Route: 048
     Dates: end: 201702
  15. SEVIKAR [Suspect]
     Active Substance: AMLODIPINE BESYLATE\OLMESARTAN MEDOXOMIL
     Indication: HYPERTENSION
     Dosage: NOT COMMUNICATED
     Route: 048
     Dates: end: 201702
  16. LEVOTHYROXINE. [Concomitant]
     Active Substance: LEVOTHYROXINE

REACTIONS (1)
  - Acute kidney injury [Recovered/Resolved]

NARRATIVE: CASE EVENT DATE: 20170213
